FAERS Safety Report 7128207-3 (Version None)
Quarter: 2010Q4

REPORT INFORMATION
  Report Type: 
  Country: None (occurrence: None)
  Receive Date: 20101130
  Receipt Date: 20101125
  Transmission Date: 20110411
  Serious: Yes (Death, Life-Threatening, Other)
  Sender: FDA-Public Use
  Company Number: PHHY2010JP60686

PATIENT
  Sex: Male
  Weight: 80 kg

DRUGS (12)
  1. NEORAL [Suspect]
     Indication: ECZEMA
     Dosage: 400 MG, BID
     Route: 048
     Dates: start: 20080312
  2. NEORAL [Suspect]
     Indication: NEURODERMATITIS
     Dosage: 300 MG, BID
     Route: 048
     Dates: start: 20080331
  3. NEORAL [Suspect]
     Dosage: 150 MG, BID
     Route: 048
     Dates: start: 20081021
  4. NEORAL [Suspect]
     Dosage: 200 MG, BID
     Route: 048
     Dates: start: 20081209
  5. NEORAL [Suspect]
     Dosage: 150 MG, BID
     Route: 048
     Dates: start: 20090909
  6. NEORAL [Suspect]
     Dosage: 150 MG, BID
     Route: 048
     Dates: start: 20100128
  7. NEORAL [Suspect]
     Dosage: 100 MG
     Route: 048
     Dates: start: 20100624
  8. NEORAL [Suspect]
     Dosage: 100 MG, BID
     Route: 048
     Dates: start: 20100726, end: 20100921
  9. ALLELOCK [Concomitant]
     Indication: NEURODERMATITIS
     Dosage: 10 MG
     Route: 048
     Dates: start: 20080101, end: 20101005
  10. AMLODIPINE [Concomitant]
     Indication: HYPERTENSION
     Dosage: 5 MG
     Route: 048
     Dates: start: 20080101
  11. ZYLORIC [Concomitant]
     Indication: HYPERURICAEMIA
     Dosage: 100 MG
     Route: 048
     Dates: start: 20080101
  12. ANESTHETICS, GENERAL [Concomitant]
     Dosage: UNK
     Dates: start: 20101005

REACTIONS (10)
  - ABDOMINAL INFECTION [None]
  - ACUTE RESPIRATORY DISTRESS SYNDROME [None]
  - BLOOD CREATININE INCREASED [None]
  - DECREASED APPETITE [None]
  - INTRA-ABDOMINAL HAEMORRHAGE [None]
  - OESOPHAGEAL CARCINOMA [None]
  - PANCREATITIS ACUTE [None]
  - PNEUMONIA [None]
  - RENAL FAILURE [None]
  - SURGERY [None]
